FAERS Safety Report 8501054-3 (Version None)
Quarter: 2012Q3

REPORT INFORMATION
  Report Type: 
  Country: None (occurrence: None)
  Receive Date: 20120710
  Receipt Date: 20120702
  Transmission Date: 20120928
  Serious: Yes (Hospitalization)
  Sender: FDA-Public Use
  Company Number: HR-JNJFOC-20120702237

PATIENT
  Age: 53 Year
  Sex: Male
  Weight: 110 kg

DRUGS (13)
  1. FOLIC ACID [Concomitant]
     Indication: PSORIATIC ARTHROPATHY
     Dosage: 1 TABLET PER DAY
     Route: 048
     Dates: start: 20090101
  2. REMICADE [Suspect]
     Route: 042
     Dates: start: 20110316
  3. METHOTREXATE [Concomitant]
     Indication: PSORIATIC ARTHROPATHY
     Route: 065
     Dates: start: 20090101
  4. ALLOPURINOL [Concomitant]
     Indication: PSORIATIC ARTHROPATHY
     Route: 048
     Dates: start: 20070101
  5. PREDNISONE TAB [Concomitant]
     Indication: PSORIATIC ARTHROPATHY
     Route: 065
     Dates: start: 20080101
  6. VOLTAREN [Concomitant]
     Route: 065
     Dates: start: 20090101
  7. REMICADE [Suspect]
     Indication: PSORIATIC ARTHROPATHY
     Route: 042
     Dates: start: 20101001
  8. REMICADE [Suspect]
     Route: 042
     Dates: start: 20101112
  9. REMICADE [Suspect]
     Route: 042
     Dates: start: 20101015
  10. REMICADE [Suspect]
     Route: 042
     Dates: start: 20110511, end: 20110511
  11. REMICADE [Suspect]
     Route: 042
     Dates: start: 20110119
  12. SULFASALAZINE [Concomitant]
     Indication: PSORIATIC ARTHROPATHY
     Route: 048
     Dates: start: 20090101
  13. ARAVA [Concomitant]
     Indication: PSORIATIC ARTHROPATHY
     Route: 065
     Dates: start: 20100101

REACTIONS (5)
  - PLEURAL EFFUSION [None]
  - PSORIATIC ARTHROPATHY [None]
  - PSORIASIS [None]
  - AORTIC DILATATION [None]
  - HYPERTENSION [None]
